FAERS Safety Report 19208935 (Version 1)
Quarter: 2021Q2

REPORT INFORMATION
  Report Type: Spontaneous
  Country: US (occurrence: US)
  Receive Date: 20210503
  Receipt Date: 20210503
  Transmission Date: 20210717
  Serious: Yes (Other)
  Sender: FDA-Public Use
  Company Number: US-SUNOVION-2021SUN001538

PATIENT
  Age: 58 Year
  Sex: Female
  Weight: 86.17 kg

DRUGS (2)
  1. APTIOM [Suspect]
     Active Substance: ESLICARBAZEPINE ACETATE
     Indication: FOCAL DYSCOGNITIVE SEIZURES
     Dosage: 600 MG, TID
     Route: 048
     Dates: start: 2017, end: 202104
  2. APTIOM [Suspect]
     Active Substance: ESLICARBAZEPINE ACETATE
     Indication: EPILEPSY
     Dosage: 600 MG 1 TAB 2:30PM AND 3 TABS AT 8:00 PM
     Route: 048

REACTIONS (11)
  - Seizure [Not Recovered/Not Resolved]
  - Intervertebral disc protrusion [Not Recovered/Not Resolved]
  - Off label use [Unknown]
  - Cerebral disorder [Not Recovered/Not Resolved]
  - Back pain [Not Recovered/Not Resolved]
  - Vomiting [Not Recovered/Not Resolved]
  - Prescribed overdose [Unknown]
  - Aura [Not Recovered/Not Resolved]
  - Migraine [Not Recovered/Not Resolved]
  - Weight increased [Not Recovered/Not Resolved]
  - Headache [Not Recovered/Not Resolved]

NARRATIVE: CASE EVENT DATE: 202104
